FAERS Safety Report 14181233 (Version 1)
Quarter: 2017Q4

REPORT INFORMATION
  Report Type: Spontaneous
  Country: US (occurrence: US)
  Receive Date: 20171112
  Receipt Date: 20171112
  Transmission Date: 20180321
  Serious: No
  Sender: FDA-Public Use
  Company Number: US-BAUSCH-BL-2017-010324

PATIENT
  Age: 21 Year
  Sex: Female
  Weight: 72.64 kg

DRUGS (1)
  1. ACANYA [Suspect]
     Active Substance: BENZOYL PEROXIDE\CLINDAMYCIN PHOSPHATE
     Indication: ACNE
     Route: 061
     Dates: start: 20170414, end: 20170416

REACTIONS (7)
  - Erythema [Recovering/Resolving]
  - Eye swelling [Recovering/Resolving]
  - Pain [Recovered/Resolved]
  - Burning sensation [Recovering/Resolving]
  - Swelling face [Recovering/Resolving]
  - Dry skin [Unknown]
  - Incorrect dose administered [Unknown]

NARRATIVE: CASE EVENT DATE: 201704
